FAERS Safety Report 10234014 (Version 1)
Quarter: 2014Q2

REPORT INFORMATION
  Report Type: Spontaneous
  Country: CN (occurrence: CN)
  Receive Date: 20140612
  Receipt Date: 20140612
  Transmission Date: 20141212
  Serious: No
  Sender: FDA-Public Use
  Company Number: CN-ELI_LILLY_AND_COMPANY-CN201406004012

PATIENT
  Sex: Male

DRUGS (1)
  1. ZYPREXA [Suspect]
     Indication: SCHIZOPHRENIA
     Dosage: 15MG, ONCE DAILY
     Route: 048
     Dates: start: 20130405, end: 20130415

REACTIONS (3)
  - White blood cell count increased [Recovering/Resolving]
  - Rash [Recovering/Resolving]
  - Penile oedema [Recovering/Resolving]
